FAERS Safety Report 11109132 (Version 2)
Quarter: 2015Q2

REPORT INFORMATION
  Report Type: Spontaneous
  Country: US (occurrence: None)
  Receive Date: 20150511
  Receipt Date: 20150518
  Transmission Date: 20150821
  Serious: Yes (Life-Threatening, Hospitalization, Other)
  Sender: FDA-Public Use
  Company Number: ADR-2015-00906

PATIENT

DRUGS (1)
  1. BACLOFEN INTRATHECAL [Suspect]
     Active Substance: BACLOFEN
     Dosage: STRENGTH: 5000MCG/ML

REACTIONS (3)
  - Road traffic accident [None]
  - Seizure [None]
  - Cardio-respiratory arrest [None]
